FAERS Safety Report 13347038 (Version 2)
Quarter: 2017Q4

REPORT INFORMATION
  Report Type: Spontaneous
  Country: DE (occurrence: DE)
  Receive Date: 20170317
  Receipt Date: 20171219
  Transmission Date: 20180320
  Serious: Yes (Hospitalization, Other)
  Sender: FDA-Public Use
  Company Number: DE-OTSUKA-2017_005778

PATIENT
  Age: 33 Year
  Sex: Male

DRUGS (3)
  1. ARIPIPRAZOLE. [Suspect]
     Active Substance: ARIPIPRAZOLE
     Indication: PSYCHOTIC DISORDER
     Dosage: 30 MG, QD
     Route: 065
  2. ARIPIPRAZOLE. [Suspect]
     Active Substance: ARIPIPRAZOLE
     Dosage: UNK
     Route: 065
  3. ABILIFY MAINTENA [Suspect]
     Active Substance: ARIPIPRAZOLE
     Indication: PSYCHOTIC DISORDER
     Dosage: 400 MG,EVERY 4 WEEKS
     Route: 065
     Dates: start: 20161031

REACTIONS (6)
  - Hospitalisation [Unknown]
  - Abnormal behaviour [Unknown]
  - Thinking abnormal [Unknown]
  - Product use in unapproved indication [Unknown]
  - Psychomotor hyperactivity [Unknown]
  - Paranoia [Unknown]

NARRATIVE: CASE EVENT DATE: 20161031
